FAERS Safety Report 14110785 (Version 1)
Quarter: 2017Q4

REPORT INFORMATION
  Report Type: Spontaneous
  Country: FR (occurrence: FR)
  Receive Date: 20171020
  Receipt Date: 20171020
  Transmission Date: 20180321
  Serious: Yes (Hospitalization)
  Sender: FDA-Public Use
  Company Number: FR-MERCK KGAA-2030875

PATIENT
  Age: 54 Year
  Sex: Female

DRUGS (3)
  1. NOVOTHYROX [Suspect]
     Active Substance: LEVOTHYROXINE SODIUM
     Indication: PRODUCT USED FOR UNKNOWN INDICATION
  2. LAMALINE [Concomitant]
     Active Substance: ACETAMINOPHEN\CAFFEINE\OPIUM
  3. MORPHIN SULFATE [Concomitant]

REACTIONS (6)
  - Abdominal distension [None]
  - Fatigue [None]
  - Swelling face [None]
  - Temperature intolerance [None]
  - Pain [None]
  - Balance disorder [None]

NARRATIVE: CASE EVENT DATE: 201706
